FAERS Safety Report 10025600 (Version 2)
Quarter: 2014Q2

REPORT INFORMATION
  Report Type: Spontaneous
  Country: US (occurrence: US)
  Receive Date: 20140320
  Receipt Date: 20140407
  Transmission Date: 20141212
  Serious: Yes (Hospitalization, Other)
  Sender: FDA-Public Use
  Company Number: US-BAYER-2014-041797

PATIENT
  Age: 34 Year
  Sex: Female
  Weight: 101.59 kg

DRUGS (7)
  1. BEYAZ [Suspect]
  2. METFORMIN [Concomitant]
     Dosage: 500 MG, BID
  3. NAPROXEN [Concomitant]
     Dosage: 550 MG, UNK
     Dates: start: 20110923
  4. HYDROCODONE/ACETAMINOPHEN [Concomitant]
     Dosage: 5-500MG
     Dates: start: 20110923
  5. MEDROXYPROGESTERONE [Concomitant]
     Dosage: 10 MG, UNK
     Dates: start: 20111012
  6. CIPROFLOXACIN [Concomitant]
     Dosage: 500 MG, UNK
     Dates: start: 20111020
  7. PROVERA [Concomitant]
     Dosage: 10 MG, UNK
     Dates: start: 20111012

REACTIONS (3)
  - Pulmonary embolism [None]
  - Deep vein thrombosis [None]
  - Cholelithiasis [None]
